FAERS Safety Report 5303442-5 (Version None)
Quarter: 2007Q2

REPORT INFORMATION
  Report Type: 
  Country: None (occurrence: None)
  Receive Date: 20070420
  Receipt Date: 20070412
  Transmission Date: 20071010
  Serious: Yes (Hospitalization)
  Sender: FDA-Public Use
  Company Number: US-SANOFI-SYNTHELABO-A03200702598

PATIENT
  Sex: Female

DRUGS (5)
  1. PLAVIX [Suspect]
     Indication: TRANSIENT ISCHAEMIC ATTACK
     Dosage: UNK
     Route: 048
     Dates: start: 20050307, end: 20061101
  2. PARACETAMOL [Concomitant]
     Dosage: UNK
     Route: 065
     Dates: start: 20061116
  3. OXYCODONE HCL [Concomitant]
     Dosage: UNK
     Route: 065
     Dates: start: 20061116
  4. FUROSEMIDE [Concomitant]
     Dosage: UNK
     Route: 065
     Dates: start: 20061211, end: 20061224
  5. APOTEX [Suspect]
     Route: 048
     Dates: start: 20061101, end: 20061217

REACTIONS (17)
  - ABDOMINAL DISCOMFORT [None]
  - ARTHRALGIA [None]
  - ASTHENIA [None]
  - BLINDNESS TRANSIENT [None]
  - BLOOD PRESSURE DECREASED [None]
  - BODY TEMPERATURE INCREASED [None]
  - CHEST PAIN [None]
  - CHILLS [None]
  - DIARRHOEA [None]
  - DIZZINESS [None]
  - DYSPNOEA [None]
  - DYSURIA [None]
  - HEADACHE [None]
  - HYPOAESTHESIA [None]
  - NAUSEA [None]
  - OEDEMA PERIPHERAL [None]
  - VOMITING [None]
